FAERS Safety Report 9962119 (Version 1)
Quarter: 2014Q1

REPORT INFORMATION
  Report Type: Spontaneous
  Country: US (occurrence: None)
  Receive Date: 20140304
  Receipt Date: 20140304
  Transmission Date: 20141002
  Serious: No
  Sender: FDA-Public Use
  Company Number: None

PATIENT
  Age: 46 Year
  Sex: Female
  Weight: 61.1 kg

DRUGS (1)
  1. ALFA 2 INTERFERON 2B [Suspect]
     Dates: start: 20130107

REACTIONS (1)
  - Neutrophil count decreased [None]
